FAERS Safety Report 10279537 (Version 1)
Quarter: 2014Q3

REPORT INFORMATION
  Report Type: Spontaneous
  Country: US (occurrence: None)
  Receive Date: 20140702
  Receipt Date: 20140702
  Transmission Date: 20150326
  Serious: Yes (Hospitalization)
  Sender: FDA-Public Use
  Company Number: None

PATIENT
  Age: 67 Year
  Sex: Male
  Weight: 110.5 kg

DRUGS (2)
  1. PROCHLORPERAZINE. [Suspect]
     Active Substance: PROCHLORPERAZINE
     Route: 042
     Dates: start: 20140611, end: 20140611
  2. HYDROMORPHONE [Suspect]
     Active Substance: HYDROMORPHONE
     Indication: PAIN
     Route: 042
     Dates: start: 20140610, end: 20140611

REACTIONS (9)
  - Apnoeic attack [None]
  - Hypertension [None]
  - Respiratory depression [None]
  - Hypoxia [None]
  - Depressed level of consciousness [None]
  - Dyspnoea [None]
  - Nausea [None]
  - Sedation [None]
  - Blood pressure decreased [None]

NARRATIVE: CASE EVENT DATE: 20140611
